FAERS Safety Report 12530676 (Version 1)
Quarter: 2016Q3

REPORT INFORMATION
  Report Type: Spontaneous
  Country: FR (occurrence: FR)
  Receive Date: 20160706
  Receipt Date: 20160706
  Transmission Date: 20161109
  Serious: Yes (Hospitalization)
  Sender: FDA-Public Use
  Company Number: FR-PFIZER INC-2016317123

PATIENT
  Age: 31 Year
  Sex: Male

DRUGS (10)
  1. ADRIBLASTINE [Suspect]
     Active Substance: DOXORUBICIN
     Indication: HODGKIN^S DISEASE
     Dosage: UNK, CYCLIC
     Route: 042
     Dates: start: 20160523
  2. DACARBAZINE MEDAC [Suspect]
     Active Substance: DACARBAZINE
     Indication: HODGKIN^S DISEASE
     Dosage: UNK, CYCLIC
     Route: 042
     Dates: start: 20160523
  3. BETAMETHASONE. [Concomitant]
     Active Substance: BETAMETHASONE
  4. CETIRIZINE HYDROCHLORIDE. [Concomitant]
     Active Substance: CETIRIZINE HYDROCHLORIDE
  5. BACTRIM [Concomitant]
     Active Substance: SULFAMETHOXAZOLE\TRIMETHOPRIM
  6. VELBE [Suspect]
     Active Substance: VINBLASTINE SULFATE
     Indication: HODGKIN^S DISEASE
     Dosage: UNK, CYCLIC
     Route: 042
     Dates: start: 20160523
  7. BLEOMYCINE BELLON [Suspect]
     Active Substance: BLEOMYCIN SULFATE
     Indication: HODGKIN^S DISEASE
     Dosage: UNK, CYCLIC
     Route: 042
     Dates: start: 20160523, end: 20160523
  8. FOLIC ACID. [Concomitant]
     Active Substance: FOLIC ACID
  9. DEXERYL /01579901/ [Concomitant]
     Active Substance: GLYCERIN\MINERAL OIL\PARAFFIN
  10. ZELITREX [Concomitant]
     Active Substance: VALACYCLOVIR HYDROCHLORIDE

REACTIONS (3)
  - Paraesthesia [Not Recovered/Not Resolved]
  - Acute polyneuropathy [Not Recovered/Not Resolved]
  - Flagellate dermatitis [Not Recovered/Not Resolved]

NARRATIVE: CASE EVENT DATE: 20160602
